FAERS Safety Report 9797208 (Version 1)
Quarter: 2014Q1

REPORT INFORMATION
  Report Type: Spontaneous
  Country: HR (occurrence: HR)
  Receive Date: 20140106
  Receipt Date: 20140106
  Transmission Date: 20141002
  Serious: Yes (Hospitalization)
  Sender: FDA-Public Use
  Company Number: PHHY2013HR153542

PATIENT
  Age: 14 Year
  Sex: 0
  Weight: 90 kg

DRUGS (2)
  1. LEKOKLAR XL [Suspect]
     Indication: HELICOBACTER INFECTION
     Dosage: 1000 MG, BID
     Route: 048
     Dates: start: 20131206, end: 20131208
  2. OSPAMOX [Suspect]
     Indication: HELICOBACTER INFECTION
     Route: 048
     Dates: start: 20131206, end: 20131208

REACTIONS (6)
  - Fear [Recovering/Resolving]
  - Nightmare [Recovering/Resolving]
  - Anxiety [Recovering/Resolving]
  - Tinnitus [Recovering/Resolving]
  - Dysgeusia [Recovering/Resolving]
  - Confusional state [Recovering/Resolving]
